FAERS Safety Report 17649257 (Version 3)
Quarter: 2020Q2

REPORT INFORMATION
  Report Type: Report from Study
  Country: US (occurrence: US)
  Receive Date: 20200409
  Receipt Date: 20200602
  Transmission Date: 20200713
  Serious: No
  Sender: FDA-Public Use
  Company Number: NVSC2020US095430

PATIENT
  Sex: Female

DRUGS (1)
  1. COSENTYX [Suspect]
     Active Substance: SECUKINUMAB
     Indication: PSORIASIS
     Dosage: UNK
     Route: 065

REACTIONS (4)
  - Product dose omission [Not Recovered/Not Resolved]
  - Blood calcium decreased [Recovering/Resolving]
  - Vitamin B12 decreased [Recovering/Resolving]
  - Vitamin D decreased [Recovering/Resolving]
